FAERS Safety Report 13471900 (Version 6)
Quarter: 2018Q1

REPORT INFORMATION
  Report Type: Spontaneous
  Country: US (occurrence: US)
  Receive Date: 20170424
  Receipt Date: 20180315
  Transmission Date: 20180508
  Serious: No
  Sender: FDA-Public Use
  Company Number: US-PFIZER INC-2017174930

PATIENT
  Age: 51 Year
  Sex: Male
  Weight: 117 kg

DRUGS (21)
  1. TESTOSTERONE CYPIONATE. [Suspect]
     Active Substance: TESTOSTERONE CYPIONATE
     Dosage: UNK
  2. PANTOPRAZOLE [Suspect]
     Active Substance: PANTOPRAZOLE
     Indication: VOMITING
     Dosage: 40 MG, UNK
     Dates: start: 20170321
  3. LIPITOR [Suspect]
     Active Substance: ATORVASTATIN CALCIUM
     Indication: VASCULAR CALCIFICATION
  4. PANTOPRAZOLE [Suspect]
     Active Substance: PANTOPRAZOLE
     Indication: HYPERCHLORHYDRIA
  5. ASPIRIN. [Suspect]
     Active Substance: ASPIRIN
     Dosage: 81 MG, UNK
  6. WELCHOL [Concomitant]
     Active Substance: COLESEVELAM HYDROCHLORIDE
     Indication: DIARRHOEA
     Dosage: 3.75 MG (1 PACKAGE), DAILY
     Route: 048
     Dates: end: 2017
  7. COENZYME Q10 [Concomitant]
     Active Substance: UBIDECARENONE
     Indication: NUTRITIONAL SUPPLEMENTATION
     Dosage: 50 MG, UNK
  8. FLU VACCINE VII [Concomitant]
     Active Substance: INFLUENZA VIRUS VACCINE
     Dosage: UNK
     Dates: start: 2017, end: 2017
  9. LIPITOR [Suspect]
     Active Substance: ATORVASTATIN CALCIUM
     Indication: HYPERLIPIDAEMIA
     Dosage: 20 MG, 1X/DAY (ONCE DAILY)
     Route: 048
     Dates: start: 20170323
  10. TESTOSTERONE CYPIONATE. [Suspect]
     Active Substance: TESTOSTERONE CYPIONATE
     Dosage: UNK
  11. TESTOSTERONE CYPIONATE. [Suspect]
     Active Substance: TESTOSTERONE CYPIONATE
     Dosage: UNK (200 MG/ML )
     Dates: start: 20170321
  12. WELCHOL [Concomitant]
     Active Substance: COLESEVELAM HYDROCHLORIDE
     Indication: HYPERLIPIDAEMIA
  13. WELCHOL [Concomitant]
     Active Substance: COLESEVELAM HYDROCHLORIDE
     Indication: BLOOD CHOLESTEROL ABNORMAL
  14. LOPERAMIDE [Concomitant]
     Active Substance: LOPERAMIDE
     Indication: DIARRHOEA
     Dosage: UNK
  15. COENZYME Q10 [Concomitant]
     Active Substance: UBIDECARENONE
     Indication: CARDIAC DISORDER
  16. EQUATE MATURE ADULTS 50+ MULTIVITAMIN [Concomitant]
     Indication: VITAMIN SUPPLEMENTATION
     Dosage: UNK
  17. TESTOSTERONE CYPIONATE. [Suspect]
     Active Substance: TESTOSTERONE CYPIONATE
     Indication: ANDROGEN DEFICIENCY
     Dosage: UNK (200 MG/ML, ONCE EVERY TWO WEEKS)
     Route: 030
     Dates: start: 20170323
  18. WELCHOL [Concomitant]
     Active Substance: COLESEVELAM HYDROCHLORIDE
     Indication: DIABETES MELLITUS
  19. COENZYME Q10 [Concomitant]
     Active Substance: UBIDECARENONE
     Indication: VITAMIN SUPPLEMENTATION
  20. ALIVE [Concomitant]
     Indication: VITAMIN SUPPLEMENTATION
     Dosage: UNK
  21. HEPATITIS B VACCINE [Concomitant]
     Active Substance: HEPATITIS B VIRUS VACCINE
     Dosage: UNK
     Dates: start: 2017, end: 2017

REACTIONS (9)
  - Myalgia [Not Recovered/Not Resolved]
  - Asthenia [Unknown]
  - Influenza [Unknown]
  - Pruritus [Recovering/Resolving]
  - Headache [Not Recovered/Not Resolved]
  - Pain in extremity [Not Recovered/Not Resolved]
  - Abdominal discomfort [Unknown]
  - Urticaria [Recovering/Resolving]
  - Skin mass [Unknown]
